FAERS Safety Report 25204694 (Version 1)
Quarter: 2025Q2

REPORT INFORMATION
  Report Type: Spontaneous
  Country: CN (occurrence: CN)
  Receive Date: 20250416
  Receipt Date: 20250416
  Transmission Date: 20250717
  Serious: Yes (Hospitalization)
  Sender: ROCHE
  Company Number: CN-ROCHE-10000249557

PATIENT
  Age: 48 Year
  Sex: Female
  Weight: 51 kg

DRUGS (6)
  1. BEVACIZUMAB [Suspect]
     Active Substance: BEVACIZUMAB
     Indication: Ovarian cancer
     Route: 042
     Dates: start: 20250228, end: 20250228
  2. CARBOPLATIN [Suspect]
     Active Substance: CARBOPLATIN
     Indication: Ovarian cancer
     Route: 042
     Dates: start: 20250228, end: 20250228
  3. DOXORUBICIN HYDROCHLORIDE [Suspect]
     Active Substance: DOXORUBICIN HYDROCHLORIDE
     Indication: Ovarian cancer
     Route: 042
     Dates: start: 20250228, end: 20250228
  4. SODIUM CHLORIDE [Concomitant]
     Active Substance: SODIUM CHLORIDE
     Indication: Ovarian cancer
     Route: 042
     Dates: start: 20250228, end: 20250228
  5. DEXTROSE [Concomitant]
     Active Substance: DEXTROSE MONOHYDRATE
     Indication: Ovarian cancer
     Dosage: DOSE : 250 MILLILITER
     Route: 042
     Dates: start: 20250228, end: 20250228
  6. DEXTROSE [Concomitant]
     Active Substance: DEXTROSE MONOHYDRATE
     Dosage: DOSE: 500 MILLILITER
     Route: 042
     Dates: start: 20250228, end: 20250228

REACTIONS (1)
  - Myelosuppression [Recovering/Resolving]

NARRATIVE: CASE EVENT DATE: 20250327
